FAERS Safety Report 5816100-5 (Version None)
Quarter: 2008Q3

REPORT INFORMATION
  Report Type: 
  Country: None (occurrence: None)
  Receive Date: 20080716
  Receipt Date: 20080716
  Transmission Date: 20090109
  Serious: Yes (Other)
  Sender: FDA-Public Use
  Company Number: None

PATIENT
  Sex: Female
  Weight: 76.2043 kg

DRUGS (1)
  1. BONIVA [Suspect]
     Indication: OSTEOPOROSIS
     Dosage: ONE TABLET ONCE A MONTH PO
     Route: 048
     Dates: start: 20060401, end: 20080501

REACTIONS (4)
  - DENTAL CARIES [None]
  - MASTICATION DISORDER [None]
  - TOOTH ABSCESS [None]
  - TOOTH LOSS [None]
